FAERS Safety Report 5008789-8 (Version None)
Quarter: 2006Q2

REPORT INFORMATION
  Report Type: 
  Country: None (occurrence: None)
  Receive Date: 20060519
  Receipt Date: 20060512
  Transmission Date: 20061013
  Serious: Yes (Hospitalization, Disabling)
  Sender: FDA-Public Use
  Company Number: 200612026BCC

PATIENT
  Sex: Female

DRUGS (1)
  1. ALEVE [Suspect]
     Dosage: ORAL
     Route: 048
     Dates: start: 20031030

REACTIONS (1)
  - MALAISE [None]
